FAERS Safety Report 5164577-3 (Version None)
Quarter: 2006Q4

REPORT INFORMATION
  Report Type: 
  Country: None (occurrence: None)
  Receive Date: 20061124
  Receipt Date: 20061109
  Transmission Date: 20070319
  Serious: Yes (Other)
  Sender: FDA-Public Use
  Company Number: 2006140995

PATIENT

DRUGS (2)
  1. DETROL LA [Suspect]
     Dosage: 4 MG (4 MG, 1 IN 1 D)
  2. ZYRTEC [Suspect]

REACTIONS (1)
  - HYPERTENSION [None]
